FAERS Safety Report 20080308 (Version 2)
Quarter: 2021Q4

REPORT INFORMATION
  Report Type: Report from Study
  Country: US (occurrence: US)
  Receive Date: 20211117
  Receipt Date: 20211124
  Transmission Date: 20220303
  Serious: No
  Sender: FDA-Public Use
  Company Number: US-NOVARTISTESTPH-NVSC2021US263228

PATIENT
  Sex: Female

DRUGS (1)
  1. ENTRESTO [Suspect]
     Active Substance: SACUBITRIL\VALSARTAN
     Indication: Product used for unknown indication
     Dosage: 0.5 DF, BID (24/26MG)
     Route: 065

REACTIONS (6)
  - Wrong technique in product usage process [Unknown]
  - Underdose [Unknown]
  - Hypervolaemia [Unknown]
  - Constipation [Unknown]
  - Pain [Unknown]
  - Dyspnoea [Unknown]
